FAERS Safety Report 9752683 (Version 2)
Quarter: 2014Q1

REPORT INFORMATION
  Report Type: Spontaneous
  Country: US (occurrence: US)
  Receive Date: 20131213
  Receipt Date: 20140129
  Transmission Date: 20141002
  Serious: Yes (Other)
  Sender: FDA-Public Use
  Company Number: US-ASTELLAS-2013US012819

PATIENT
  Age: 59 Year
  Sex: Male
  Weight: 97 kg

DRUGS (2)
  1. PROGRAF [Suspect]
     Indication: RENAL TRANSPLANT
     Dosage: 3 MG, BID
     Route: 048
     Dates: start: 20000226
  2. PROGRAF [Suspect]
     Indication: PANCREAS TRANSPLANT

REACTIONS (6)
  - Off label use [Unknown]
  - Blindness [Unknown]
  - Blindness [Unknown]
  - Local swelling [Unknown]
  - Hip arthroplasty [Unknown]
  - Transplant failure [Unknown]
